FAERS Safety Report 4836726-5 (Version None)
Quarter: 2005Q4

REPORT INFORMATION
  Report Type: 
  Country: None (occurrence: None)
  Receive Date: 20051123
  Receipt Date: 20051116
  Transmission Date: 20060501
  Serious: Yes (Death, Other)
  Sender: FDA-Public Use
  Company Number: US-ABBOTT-05P-163-0317916-00

PATIENT
  Age: 45 Year
  Sex: Male

DRUGS (1)
  1. COLCHICINE TABLETS [Suspect]
     Indication: DRUG USE FOR UNKNOWN INDICATION
     Route: 048

REACTIONS (16)
  - BONE MARROW FAILURE [None]
  - CARDIAC ARREST [None]
  - DRUG TOXICITY [None]
  - DYSPNOEA [None]
  - LACTIC ACIDOSIS [None]
  - LEUKOCYTOSIS [None]
  - METABOLIC ACIDOSIS [None]
  - MULTI-ORGAN FAILURE [None]
  - MYOCARDIAL INFARCTION [None]
  - NAUSEA [None]
  - OVERDOSE [None]
  - PYREXIA [None]
  - RASH MACULO-PAPULAR [None]
  - SEPSIS SYNDROME [None]
  - UPPER GASTROINTESTINAL HAEMORRHAGE [None]
  - VENTRICULAR FIBRILLATION [None]
